FAERS Safety Report 17036450 (Version 1)
Quarter: 2019Q4

REPORT INFORMATION
  Report Type: Spontaneous
  Country: US (occurrence: US)
  Receive Date: 20191115
  Receipt Date: 20191115
  Transmission Date: 20200122
  Serious: Yes (Other)
  Sender: FDA-Public Use
  Company Number: US-ROCHE-2389928

PATIENT
  Sex: Female

DRUGS (1)
  1. ACTEMRA [Suspect]
     Active Substance: TOCILIZUMAB
     Indication: RHEUMATOID ARTHRITIS
     Dosage: FORM STRENGTH 162 MG/0.9M
     Route: 058
     Dates: start: 20190426

REACTIONS (3)
  - Gastrointestinal oedema [Unknown]
  - Dyspnoea [Unknown]
  - Blister [Unknown]
